FAERS Safety Report 5405302-8 (Version None)
Quarter: 2007Q3

REPORT INFORMATION
  Report Type: 
  Country: None (occurrence: None)
  Receive Date: 20070803
  Receipt Date: 20070725
  Transmission Date: 20080115
  Serious: Yes (Hospitalization)
  Sender: FDA-Public Use
  Company Number: B0480518A

PATIENT
  Age: 79 Year
  Sex: Female

DRUGS (6)
  1. PAROXETINE HCL [Suspect]
     Indication: DEPRESSION
     Route: 048
     Dates: start: 20061107, end: 20061107
  2. XANAX [Suspect]
     Indication: DEPRESSION
     Dosage: .25MG PER DAY
     Route: 048
     Dates: start: 20061107, end: 20061107
  3. LASIX [Concomitant]
     Indication: CARDIAC FAILURE
     Route: 048
  4. ADANCOR [Concomitant]
     Indication: CARDIAC FAILURE
     Route: 048
  5. KARDEGIC [Concomitant]
     Indication: CARDIAC FAILURE
  6. NEXIUM [Concomitant]
     Indication: CARDIAC FAILURE
     Route: 048

REACTIONS (5)
  - BRADYCARDIA [None]
  - BREAST PAIN [None]
  - HYPONATRAEMIA [None]
  - RIB FRACTURE [None]
  - SYNCOPE [None]
